FAERS Safety Report 19225815 (Version 1)
Quarter: 2021Q2

REPORT INFORMATION
  Report Type: Other
  Country: US (occurrence: US)
  Receive Date: 20210505
  Receipt Date: 20210505
  Transmission Date: 20210717
  Serious: No
  Sender: FDA-Public Use
  Company Number: US-ROCHE-2646422

PATIENT
  Age: 9 Year
  Sex: Male

DRUGS (2)
  1. BEVACIZUMAB. [Suspect]
     Active Substance: BEVACIZUMAB
     Indication: EXUDATIVE RETINOPATHY
     Dosage: 2.5MG/0.1ML
     Route: 050
  2. BROLUCIZUMAB. [Concomitant]
     Active Substance: BROLUCIZUMAB
     Indication: EXUDATIVE RETINOPATHY
     Dosage: 6MG/0.05ML

REACTIONS (3)
  - Intentional product use issue [Unknown]
  - No adverse event [Unknown]
  - Off label use [Unknown]
